FAERS Safety Report 8344129-4 (Version None)
Quarter: 2012Q2

REPORT INFORMATION
  Report Type: 
  Country: None (occurrence: None)
  Receive Date: 20120508
  Receipt Date: 20120507
  Transmission Date: 20120825
  Serious: Yes (Death)
  Sender: FDA-Public Use
  Company Number: PHHY2012CA038389

PATIENT
  Sex: Male

DRUGS (3)
  1. CLOZARIL [Suspect]
     Indication: AGGRESSION
  2. CLOZARIL [Suspect]
     Indication: HALLUCINATION
  3. CLOZARIL [Suspect]
     Indication: AGITATION
     Dosage: UNK UKN, UNK
     Dates: start: 20110527

REACTIONS (2)
  - PARKINSON'S DISEASE [None]
  - PNEUMONIA ASPIRATION [None]
